FAERS Safety Report 5905518-8 (Version None)
Quarter: 2008Q4

REPORT INFORMATION
  Report Type: 
  Country: None (occurrence: None)
  Receive Date: 20081001
  Receipt Date: 20081001
  Transmission Date: 20090506
  Serious: Yes (Death)
  Sender: FDA-Public Use
  Company Number: None

PATIENT
  Sex: Male
  Weight: 67.9 kg

DRUGS (15)
  1. IRINOTECAN HYDROCHLORIDE [Suspect]
     Indication: GLIOBLASTOMA MULTIFORME
     Dosage: 325MG/M2 DAY 1, 8, 22, 29 IV
     Route: 042
     Dates: start: 20061003
  2. IRINOTECAN HYDROCHLORIDE [Suspect]
     Indication: GLIOBLASTOMA MULTIFORME
     Dosage: 325MG/M2 DAY 1, 8, 22, 29 IV
     Route: 042
     Dates: start: 20061010
  3. IRINOTECAN HYDROCHLORIDE [Suspect]
     Indication: GLIOBLASTOMA MULTIFORME
     Dosage: 325MG/M2 DAY 1, 8, 22, 29 IV
     Route: 042
     Dates: start: 20061024
  4. IRINOTECAN HYDROCHLORIDE [Suspect]
     Indication: GLIOBLASTOMA MULTIFORME
     Dosage: 325MG/M2 DAY 1, 8, 22, 29 IV
     Route: 042
     Dates: start: 20061031
  5. TEMODAR [Suspect]
     Indication: GLIOBLASTOMA MULTIFORME
     Dosage: 200MG/M2 DAYS 1-5 PO
     Route: 048
     Dates: start: 20061003, end: 20061007
  6. DILANTIN [Concomitant]
  7. DEXAMETHASONE [Concomitant]
  8. ATIVAN [Concomitant]
  9. FLONASE [Concomitant]
  10. ZANTAC [Concomitant]
  11. ZOFRAN [Concomitant]
  12. TYLENOL (CAPLET) [Concomitant]
  13. CALCIUM [Concomitant]
  14. MULTI-VITAMIN [Concomitant]
  15. VITAMIN D [Concomitant]

REACTIONS (12)
  - CARDIO-RESPIRATORY ARREST [None]
  - COGNITIVE DISORDER [None]
  - DRUG INEFFECTIVE [None]
  - GENERAL PHYSICAL HEALTH DETERIORATION [None]
  - GLIOBLASTOMA MULTIFORME [None]
  - HEADACHE [None]
  - INTRACRANIAL PRESSURE INCREASED [None]
  - MALIGNANT NEOPLASM PROGRESSION [None]
  - MUSCULAR WEAKNESS [None]
  - NAUSEA [None]
  - URINARY INCONTINENCE [None]
  - VOMITING [None]
